FAERS Safety Report 21631079 (Version 1)
Quarter: 2022Q4

REPORT INFORMATION
  Report Type: Spontaneous
  Country: US (occurrence: US)
  Receive Date: 20221123
  Receipt Date: 20221123
  Transmission Date: 20230112
  Serious: Yes (Other)
  Sender: FDA-Public Use
  Company Number: US-SA-SAC20221117001436

PATIENT
  Age: 35 Year
  Sex: Male

DRUGS (4)
  1. CABLIVI [Suspect]
     Active Substance: CAPLACIZUMAB-YHDP
     Indication: Thrombotic microangiopathy
     Dosage: UNK
     Route: 058
     Dates: start: 20220518
  2. VALIUM [Concomitant]
     Active Substance: DIAZEPAM
     Indication: Depression
     Dosage: 10 MG, TID
  3. METHADONE [Concomitant]
     Active Substance: METHADONE HYDROCHLORIDE
     Indication: Depression
     Dosage: 260 MG, QD
  4. BUSPAR [Concomitant]
     Active Substance: BUSPIRONE HYDROCHLORIDE
     Indication: Panic attack
     Dosage: 5 MG, QD

REACTIONS (6)
  - Necrosis [Unknown]
  - Cellulitis [Unknown]
  - Peripheral swelling [Unknown]
  - Contusion [Unknown]
  - Fall [Unknown]
  - Product use in unapproved indication [Unknown]

NARRATIVE: CASE EVENT DATE: 20221001
